FAERS Safety Report 21959438 (Version 1)
Quarter: 2023Q1

REPORT INFORMATION
  Report Type: Spontaneous
  Country: US (occurrence: None)
  Receive Date: 20230203
  Receipt Date: 20230203
  Transmission Date: 20230417
  Serious: Yes (Hospitalization)
  Sender: FDA-Public Use
  Company Number: None

PATIENT
  Sex: Female

DRUGS (1)
  1. TOBRAMYCIN INHALATION SOLUTION [Suspect]
     Active Substance: TOBRAMYCIN
     Indication: Chronic respiratory failure
     Dosage: FREQUENCY : TWICE A DAY;?OTHER ROUTE : NEBULIZATION ;?
     Route: 050
     Dates: start: 20201123

REACTIONS (1)
  - Pneumonia [None]
